FAERS Safety Report 5842258-8 (Version None)
Quarter: 2008Q3

REPORT INFORMATION
  Report Type: 
  Country: None (occurrence: None)
  Receive Date: 20080812
  Receipt Date: 20080811
  Transmission Date: 20090109
  Serious: Yes (Hospitalization)
  Sender: FDA-Public Use
  Company Number: US-SANOFI-SYNTHELABO-D01200805615

PATIENT
  Sex: Female
  Weight: 65.3 kg

DRUGS (12)
  1. ASA HIGH DOSE [Concomitant]
     Indication: ACUTE CORONARY SYNDROME
     Dosage: AT LEAST 300 MG D1; 300-325 MG FROM D2 TO D30
     Route: 048
  2. CLOPIDOGREL [Suspect]
     Indication: ACUTE CORONARY SYNDROME
     Dosage: 300 MG (+PLACEBO) D1 FOLLOWED BY 75 MG (+PLACEBO) D2 TO D7; 75 MG FROM D8 TO 30
     Route: 048
  3. REQUIP [Concomitant]
     Dosage: 1 MG
     Route: 065
  4. PRAVACHOL [Concomitant]
  5. PROTONIX [Concomitant]
  6. HYZAAR [Concomitant]
     Dosage: 25 MG
     Route: 065
  7. LABETALOL HCL [Concomitant]
     Dosage: 200 MG
     Route: 065
  8. ASA LOW DOSE [Concomitant]
     Indication: ACUTE CORONARY SYNDROME
     Dosage: AT LEAST 300 MG D1; 75-100 MG FROM D2 TO D30
     Route: 048
  9. CLOPIDOGREL [Suspect]
     Indication: ACUTE CORONARY SYNDROME
     Dosage: 600 MG LD D1 FOLLOWED BY 150 MG FROM D2 TO D7; 75 MG FROM D8 TO 30
     Route: 048
  10. NITROGLYCERIN [Concomitant]
  11. LASIX [Concomitant]
  12. LOVENOX [Concomitant]

REACTIONS (1)
  - VASCULAR PSEUDOANEURYSM [None]
